FAERS Safety Report 8222628-3 (Version None)
Quarter: 2012Q1

REPORT INFORMATION
  Report Type: 
  Country: None (occurrence: None)
  Receive Date: 20120320
  Receipt Date: 20120312
  Transmission Date: 20120608
  Serious: Yes (Hospitalization)
  Sender: FDA-Public Use
  Company Number: JP-ALLERGAN-1203795US

PATIENT
  Age: 21 Year
  Sex: Female

DRUGS (1)
  1. BOTOX [Suspect]
     Indication: TORTICOLLIS
     Dosage: 100 IU, SINGLE
     Route: 030
     Dates: start: 20120127, end: 20120127

REACTIONS (1)
  - PNEUMONIA [None]
